FAERS Safety Report 14028486 (Version 1)
Quarter: 2017Q3

REPORT INFORMATION
  Report Type: Spontaneous
  Country: US (occurrence: US)
  Receive Date: 20170930
  Receipt Date: 20170930
  Transmission Date: 20171128
  Serious: No
  Sender: FDA-Public Use
  Company Number: US-SA-2017SA047739

PATIENT
  Age: 71 Year
  Sex: Female

DRUGS (10)
  1. ACETAMINOPHEN W/OXYCODONE [Concomitant]
     Active Substance: ACETAMINOPHEN\OXYCODONE HYDROCHLORIDE
  2. PROVIGIL [Concomitant]
     Active Substance: MODAFINIL
  3. AUBAGIO [Suspect]
     Active Substance: TERIFLUNOMIDE
     Indication: MULTIPLE SCLEROSIS
     Route: 048
     Dates: start: 201610
  4. ATENOLOL. [Concomitant]
     Active Substance: ATENOLOL
  5. XANAX [Concomitant]
     Active Substance: ALPRAZOLAM
  6. KLOR-CON [Concomitant]
     Active Substance: POTASSIUM CHLORIDE
  7. PLAVIX [Concomitant]
     Active Substance: CLOPIDOGREL BISULFATE
  8. PROVENTIL [Concomitant]
     Active Substance: ALBUTEROL
  9. RAMIPRIL. [Concomitant]
     Active Substance: RAMIPRIL
  10. NAPROXEN. [Concomitant]
     Active Substance: NAPROXEN

REACTIONS (6)
  - Diarrhoea [Unknown]
  - Alopecia [Unknown]
  - Alopecia [Unknown]
  - Lacrimation increased [Unknown]
  - Hypoaesthesia [Unknown]
  - Peripheral swelling [Unknown]

NARRATIVE: CASE EVENT DATE: 201612
